FAERS Safety Report 20127920 (Version 1)
Quarter: 2021Q4

REPORT INFORMATION
  Report Type: Spontaneous
  Country: US (occurrence: None)
  Receive Date: 20211129
  Receipt Date: 20211129
  Transmission Date: 20220303
  Serious: Yes (Other)
  Sender: FDA-Public Use
  Company Number: US-ROCHE-2754612

PATIENT
  Sex: Female

DRUGS (2)
  1. HERCEPTIN [Suspect]
     Active Substance: TRASTUZUMAB
     Indication: Product used for unknown indication
     Route: 041
  2. TUKYSA [Suspect]
     Active Substance: TUCATINIB
     Indication: Breast cancer female
     Route: 065

REACTIONS (14)
  - Herpes zoster [Unknown]
  - Device related infection [Unknown]
  - Lung disorder [Unknown]
  - Constipation [Unknown]
  - Product dose omission in error [Unknown]
  - Tumour marker abnormal [Unknown]
  - Onychomalacia [Unknown]
  - Fatigue [Unknown]
  - Neuropathy peripheral [Unknown]
  - Decreased appetite [Unknown]
  - Red blood cell count decreased [Unknown]
  - Weight decreased [Unknown]
  - Nausea [Unknown]
  - Product physical issue [Unknown]
